FAERS Safety Report 13593403 (Version 1)
Quarter: 2017Q2

REPORT INFORMATION
  Report Type: Spontaneous
  Country: US (occurrence: US)
  Receive Date: 20170530
  Receipt Date: 20170530
  Transmission Date: 20170830
  Serious: Yes (Other)
  Sender: FDA-Public Use
  Company Number: US-TEVA-748521USA

PATIENT

DRUGS (7)
  1. ATORVASTATIN [Concomitant]
     Active Substance: ATORVASTATIN
     Dosage: 10 MG
  2. FOLIC ACID. [Concomitant]
     Active Substance: FOLIC ACID
  3. DULOXETINE. [Concomitant]
     Active Substance: DULOXETINE
  4. SOTALOL. [Suspect]
     Active Substance: SOTALOL
     Indication: ATRIAL FIBRILLATION
     Route: 065
     Dates: start: 20160615
  5. FAMOTIDINE. [Concomitant]
     Active Substance: FAMOTIDINE
  6. FUROSEMIDE. [Concomitant]
     Active Substance: FUROSEMIDE
  7. SOTALOL. [Suspect]
     Active Substance: SOTALOL
     Dosage: REDUCED TO 1/2 TAB TWICE A DAY
     Route: 065
     Dates: start: 201608, end: 201608

REACTIONS (9)
  - Arthralgia [Not Recovered/Not Resolved]
  - Panic attack [Unknown]
  - Malaise [Unknown]
  - Vision blurred [Not Recovered/Not Resolved]
  - Weight decreased [Unknown]
  - Swelling face [Not Recovered/Not Resolved]
  - Dyspnoea [Not Recovered/Not Resolved]
  - Cough [Unknown]
  - Peripheral swelling [Not Recovered/Not Resolved]

NARRATIVE: CASE EVENT DATE: 2016
